FAERS Safety Report 11696886 (Version 1)
Quarter: 2015Q4

REPORT INFORMATION
  Report Type: Spontaneous
  Country: JP (occurrence: JP)
  Receive Date: 20151104
  Receipt Date: 20151104
  Transmission Date: 20160304
  Serious: Yes (Other)
  Sender: FDA-Public Use
  Company Number: JP-PFIZER INC-2015366093

PATIENT
  Age: 6 Day
  Sex: Female

DRUGS (6)
  1. SILDENAFIL CITRATE. [Suspect]
     Active Substance: SILDENAFIL CITRATE
     Indication: PERSISTENT FOETAL CIRCULATION
     Dosage: 1 MG/KG, DAILY
  2. SILDENAFIL CITRATE. [Suspect]
     Active Substance: SILDENAFIL CITRATE
     Dosage: 4 MG/KG, DAILY
  3. EPOPROSTENOL. [Concomitant]
     Active Substance: EPOPROSTENOL
     Indication: PERSISTENT FOETAL CIRCULATION
  4. SILDENAFIL CITRATE. [Suspect]
     Active Substance: SILDENAFIL CITRATE
     Dosage: 4 MG/KG, DAILY
  5. SILDENAFIL CITRATE. [Suspect]
     Active Substance: SILDENAFIL CITRATE
     Dosage: 1 MG/KG, DAILY
  6. MILRINONE [Concomitant]
     Active Substance: MILRINONE
     Indication: PERSISTENT FOETAL CIRCULATION

REACTIONS (1)
  - Retinopathy of prematurity [Unknown]
